FAERS Safety Report 14591703 (Version 2)
Quarter: 2018Q2

REPORT INFORMATION
  Report Type: Spontaneous
  Country: DE (occurrence: DE)
  Receive Date: 20180302
  Receipt Date: 20180411
  Transmission Date: 20180711
  Serious: Yes (Other)
  Sender: FDA-Public Use
  Company Number: DE-ASTRAZENECA-2018SE23903

PATIENT
  Age: 46 Year
  Sex: Female

DRUGS (2)
  1. ZOLMITRIPTAN. [Suspect]
     Active Substance: ZOLMITRIPTAN
     Indication: TINNITUS
     Route: 055
  2. INDOMETHACIN. [Suspect]
     Active Substance: INDOMETHACIN
     Indication: TINNITUS
     Route: 055

REACTIONS (3)
  - Vertigo [Unknown]
  - Pain [Unknown]
  - Nausea [Unknown]
